FAERS Safety Report 14419522 (Version 1)
Quarter: 2018Q1

REPORT INFORMATION
  Report Type: Not Available
  Country: US (occurrence: US)
  Receive Date: 20180122
  Receipt Date: 20180122
  Transmission Date: 20180509
  Serious: No
  Sender: FDA-Public Use
  Company Number: US-NEUROCRINE BIOSCIENCES INC.-2017NBI01706

PATIENT
  Sex: Female

DRUGS (2)
  1. INGREZZA [Suspect]
     Active Substance: VALBENAZINE
     Route: 048
     Dates: start: 20170825, end: 20171101
  2. INGREZZA [Suspect]
     Active Substance: VALBENAZINE
     Indication: PRODUCT USED FOR UNKNOWN INDICATION
     Route: 048
     Dates: start: 20170818, end: 20170824

REACTIONS (6)
  - Lethargy [Unknown]
  - Somnolence [Unknown]
  - Gait inability [Unknown]
  - Urinary incontinence [Unknown]
  - Asthenia [Unknown]
  - Emotional poverty [Unknown]

NARRATIVE: CASE EVENT DATE: 2017
